FAERS Safety Report 6761972-3 (Version None)
Quarter: 2010Q2

REPORT INFORMATION
  Report Type: 
  Country: None (occurrence: None)
  Receive Date: 20100609
  Receipt Date: 20100604
  Transmission Date: 20101027
  Serious: Yes (Death, Hospitalization, Other)
  Sender: FDA-Public Use
  Company Number: LB-JNJFOC-20100510322

PATIENT
  Age: 73 Year
  Sex: Male

DRUGS (6)
  1. LEVOFLOXACIN [Suspect]
     Indication: LUNG INFILTRATION
     Route: 042
  2. HUMAN INSULIN [Suspect]
     Indication: DIABETES MELLITUS
     Route: 065
  3. DEPAKENE [Concomitant]
     Indication: CONVULSION PROPHYLAXIS
     Route: 065
  4. CLINDAMYCIN [Concomitant]
     Indication: LUNG INFILTRATION
     Route: 042
  5. AUGMENTIN '125' [Concomitant]
     Indication: LUNG INFILTRATION
     Route: 042
  6. OMEPRAZOLE [Concomitant]
     Indication: PROPHYLAXIS
     Route: 048

REACTIONS (3)
  - HYPERHIDROSIS [None]
  - HYPOGLYCAEMIA [None]
  - MENINGOENCEPHALITIS HERPETIC [None]
